FAERS Safety Report 5074472-6 (Version None)
Quarter: 2006Q3

REPORT INFORMATION
  Report Type: 
  Country: None (occurrence: None)
  Receive Date: 20060803
  Receipt Date: 20060724
  Transmission Date: 20061208
  Serious: Yes (Other)
  Sender: FDA-Public Use
  Company Number: 2006091302

PATIENT
  Age: 61 Year
  Sex: Female
  Weight: 112.9457 kg

DRUGS (3)
  1. GLUCOTROL XL [Suspect]
     Indication: DRUG USE FOR UNKNOWN INDICATION
     Dosage: 10 MG (10 MG, 1 IN 1 D)
     Dates: start: 19980101
  2. NEXIUM [Concomitant]
  3. KETOPROFEN [Concomitant]

REACTIONS (1)
  - BLOOD GLUCOSE INCREASED [None]
